FAERS Safety Report 21154818 (Version 3)
Quarter: 2022Q4

REPORT INFORMATION
  Report Type: Spontaneous
  Country: US (occurrence: US)
  Receive Date: 20220801
  Receipt Date: 20221118
  Transmission Date: 20230113
  Serious: No
  Sender: FDA-Public Use
  Company Number: US-PFIZER INC-202200985664

PATIENT
  Age: 12 Year
  Sex: Male

DRUGS (1)
  1. GENOTROPIN [Suspect]
     Active Substance: SOMATROPIN
     Indication: Growth hormone deficiency
     Dosage: UNK, 1X/DAY, [0.6 INJECTION]

REACTIONS (4)
  - Device physical property issue [Unknown]
  - Drug dose omission by device [Unknown]
  - Expired device used [Unknown]
  - Device power source issue [Unknown]

NARRATIVE: CASE EVENT DATE: 20220101
